FAERS Safety Report 4283237-4 (Version None)
Quarter: 2004Q1

REPORT INFORMATION
  Report Type: 
  Country: None (occurrence: None)
  Receive Date: 20040129
  Receipt Date: 20040119
  Transmission Date: 20041129
  Serious: Yes (Hospitalization)
  Sender: FDA-Public Use
  Company Number: FR-JNJFOC-20040103756

PATIENT
  Age: 25 Year
  Sex: Female
  Weight: 52 kg

DRUGS (2)
  1. RISPERDAL [Suspect]
     Indication: ABNORMAL BEHAVIOUR
     Dosage: 4 MG, IN 1 DAY, ORAL
     Route: 048
     Dates: start: 20031113, end: 20031115
  2. ZYPREXA [Suspect]
     Indication: ABNORMAL BEHAVIOUR
     Dates: start: 20031118, end: 20031120

REACTIONS (2)
  - DRUG INTERACTION [None]
  - NEUTROPENIA [None]
